FAERS Safety Report 10347708 (Version 1)
Quarter: 2014Q3

REPORT INFORMATION
  Report Type: Spontaneous
  Country: US (occurrence: US)
  Receive Date: 20140729
  Receipt Date: 20140729
  Transmission Date: 20150326
  Serious: No
  Sender: FDA-Public Use
  Company Number: US-ASTRAZENECA-2014SE52670

PATIENT
  Age: 75 Year
  Sex: Female
  Weight: 68 kg

DRUGS (9)
  1. METHOCARBAM [Concomitant]
     Indication: MUSCLE RELAXANT THERAPY
     Dosage: 1/2 OF ONE HS
     Route: 048
  2. OTHER MIGRAINE MEDICATIONS [Suspect]
     Active Substance: UNSPECIFIED INGREDIENT
     Route: 065
  3. TRAMADOL [Concomitant]
     Active Substance: TRAMADOL
     Indication: FEELING OF RELAXATION
     Dosage: HALF TABLET AT NIGHT PRN
     Route: 048
  4. ZOMIG [Suspect]
     Active Substance: ZOLMITRIPTAN
     Indication: MIGRAINE
     Dosage: ONE QUARTER TABLET PRN
     Route: 048
     Dates: start: 2013
  5. FLEXERIL [Concomitant]
     Active Substance: CYCLOBENZAPRINE HYDROCHLORIDE
     Indication: HYPOTONIA
     Dosage: HALF OF ONE
  6. NARATRIPTAN [Suspect]
     Active Substance: NARATRIPTAN HYDROCHLORIDE
     Dosage: GENERIC OF AMERGE
     Route: 065
  7. AMITRIPTYLINE [Concomitant]
     Active Substance: AMITRIPTYLINE
     Indication: HEADACHE
     Route: 048
     Dates: start: 1989
  8. ZOMIG [Suspect]
     Active Substance: ZOLMITRIPTAN
     Indication: MIGRAINE
     Dosage: ONE QUARTER AT THE ONSET OF A MIGRAINE AND THEN ANOTHER QUARTER IF NEEDED
     Route: 048
  9. TRAMADOL [Concomitant]
     Active Substance: TRAMADOL
     Indication: ARTHRALGIA
     Dosage: HALF TABLET AT NIGHT PRN
     Route: 048

REACTIONS (7)
  - Fatigue [Not Recovered/Not Resolved]
  - Off label use [Not Recovered/Not Resolved]
  - Malaise [Not Recovered/Not Resolved]
  - Osteoarthritis [Not Recovered/Not Resolved]
  - Abdominal discomfort [Not Recovered/Not Resolved]
  - Flushing [Not Recovered/Not Resolved]
  - Headache [Not Recovered/Not Resolved]
